FAERS Safety Report 16398602 (Version 1)
Quarter: 2019Q2

REPORT INFORMATION
  Report Type: Spontaneous
  Country: CA (occurrence: CA)
  Receive Date: 20190606
  Receipt Date: 20190606
  Transmission Date: 20190711
  Serious: Yes (Other)
  Sender: FDA-Public Use
  Company Number: CA-ROCHE-2332841

PATIENT
  Sex: Male

DRUGS (1)
  1. ESBRIET [Suspect]
     Active Substance: PIRFENIDONE
     Indication: PRODUCT USED FOR UNKNOWN INDICATION
     Route: 048
     Dates: start: 201812

REACTIONS (7)
  - Muscle disorder [Unknown]
  - Syncope [Unknown]
  - Tremor [Unknown]
  - Sensory disturbance [Unknown]
  - Loss of consciousness [Unknown]
  - Urinary incontinence [Unknown]
  - Pulmonary thrombosis [Unknown]
